FAERS Safety Report 6408630-2 (Version None)
Quarter: 2009Q4

REPORT INFORMATION
  Report Type: 
  Country: None (occurrence: None)
  Receive Date: 20091021
  Receipt Date: 20091009
  Transmission Date: 20100525
  Serious: Yes (Death, Hospitalization, Other)
  Sender: FDA-Public Use
  Company Number: AR-PFIZER INC-2006085159

PATIENT
  Age: 65 Year

DRUGS (6)
  1. SUNITINIB MALATE [Suspect]
     Indication: RENAL CELL CARCINOMA
     Dosage: 4/2 SCHEDULE
     Route: 048
     Dates: start: 20060609, end: 20060702
  2. SUNITINIB MALATE [Suspect]
     Indication: RENAL CANCER
  3. ACENOCOUMAROL [Concomitant]
     Route: 048
     Dates: start: 20060316
  4. SPIRONOLACTONE [Concomitant]
     Route: 048
     Dates: start: 20060316
  5. AMOXICILLIN [Concomitant]
     Route: 048
     Dates: start: 20060620, end: 20060630
  6. IBUPROFEN [Concomitant]
     Route: 048
     Dates: start: 20060620

REACTIONS (2)
  - HEPATITIS ACUTE [None]
  - RESPIRATORY TRACT HAEMORRHAGE [None]
